FAERS Safety Report 8809846 (Version 1)
Quarter: 2012Q4

REPORT INFORMATION
  Report Type: 
  Country: US (occurrence: US)
  Receive Date: 20120926
  Receipt Date: 20120926
  Transmission Date: 20130627
  Serious: Yes (Other)
  Sender: FDA-Public Use
  Company Number: US-ROCHE-1101021

PATIENT
  Age: 65 None
  Sex: Male
  Weight: 89.8 kg

DRUGS (10)
  1. ZELBORAF [Suspect]
     Indication: METASTATIC MALIGNANT MELANOMA
     Route: 048
     Dates: start: 20120712
  2. KLOR-CON [Concomitant]
     Indication: BLOOD POTASSIUM DECREASED
     Route: 048
     Dates: start: 20120314
  3. PROZAC [Concomitant]
     Indication: DEPRESSION
     Route: 048
  4. SYNTHROID [Concomitant]
     Route: 048
     Dates: start: 20111018
  5. TENORMIN [Concomitant]
     Indication: HYPERTENSION
     Route: 048
  6. VALIUM [Concomitant]
     Indication: ANXIETY
     Route: 048
     Dates: start: 20110720
  7. REMERON [Concomitant]
     Indication: DEPRESSION
     Route: 048
     Dates: start: 20120808
  8. LIPITOR [Concomitant]
     Route: 048
  9. NORVASC [Concomitant]
     Route: 048
  10. RADIOTHERAPY [Concomitant]
     Route: 065
     Dates: start: 20120305, end: 20120413

REACTIONS (10)
  - Radiation skin injury [Recovering/Resolving]
  - Dysgeusia [Not Recovered/Not Resolved]
  - Fatigue [Unknown]
  - Diarrhoea [Unknown]
  - Weight increased [Unknown]
  - Sunburn [Recovered/Resolved]
  - Anxiety [Unknown]
  - Pyrexia [Unknown]
  - Retinal detachment [Unknown]
  - Haematuria [Unknown]
